FAERS Safety Report 8076502-6 (Version None)
Quarter: 2012Q1

REPORT INFORMATION
  Report Type: 
  Country: None (occurrence: None)
  Receive Date: 20120127
  Receipt Date: 20120120
  Transmission Date: 20120608
  Serious: Yes (Other)
  Sender: FDA-Public Use
  Company Number: BR-BIOMARINP-002268

PATIENT
  Sex: Male
  Weight: 21.8 kg

DRUGS (3)
  1. ACETAMINOPHEN [Concomitant]
     Indication: PREMEDICATION
     Route: 048
  2. NAGLAZYME [Suspect]
     Indication: MUCOPOLYSACCHARIDOSIS VI
     Route: 041
     Dates: start: 20100225
  3. POLARAMINE [Concomitant]
     Indication: PREMEDICATION
     Route: 048

REACTIONS (1)
  - CERVICAL CORD COMPRESSION [None]
